FAERS Safety Report 4895926-9 (Version None)
Quarter: 2006Q1

REPORT INFORMATION
  Report Type: 
  Country: None (occurrence: None)
  Receive Date: 20060125
  Receipt Date: 20060119
  Transmission Date: 20060701
  Serious: Yes (Other)
  Sender: FDA-Public Use
  Company Number: 2005EU002766

PATIENT
  Age: 21 Year
  Sex: Female
  Weight: 47 kg

DRUGS (3)
  1. PROTOPIC [Suspect]
     Indication: DERMATITIS ATOPIC
     Dosage: 0.1%, UID/QD, TOPICAL; 3 DF, MONTHLY, TOPICAL
     Route: 061
     Dates: start: 20050718, end: 20050807
  2. PROTOPIC [Suspect]
     Indication: DERMATITIS ATOPIC
     Dosage: 0.1%, UID/QD, TOPICAL; 3 DF, MONTHLY, TOPICAL
     Route: 061
     Dates: start: 20050807, end: 20051101
  3. EMOLLIENTS AND PROTECTIVES [Concomitant]

REACTIONS (4)
  - APPLICATION SITE INFECTION [None]
  - HERPES VIRUS INFECTION [None]
  - KERATITIS HERPETIC [None]
  - LYMPHADENOPATHY [None]
